FAERS Safety Report 9433279 (Version 1)
Quarter: 2013Q3

REPORT INFORMATION
  Report Type: Spontaneous
  Country: CA (occurrence: CA)
  Receive Date: 20130731
  Receipt Date: 20130731
  Transmission Date: 20140515
  Serious: Yes (Hospitalization)
  Sender: FDA-Public Use
  Company Number: CA-ASTRAZENECA-2013SE55854

PATIENT
  Age: 58 Year
  Sex: Female

DRUGS (5)
  1. NEXIUM [Suspect]
     Route: 048
  2. PROLIA (AMGEN) [Suspect]
     Indication: OSTEOPOROSIS
     Dosage: 60 MG EVERY 6 MONTHS
     Route: 058
     Dates: end: 20130506
  3. RISPERIDONE [Concomitant]
  4. POTASSIUM [Concomitant]
  5. MAXERAN [Concomitant]

REACTIONS (4)
  - Blood phosphorus decreased [Unknown]
  - Irritability [Unknown]
  - Hypomagnesaemia [Recovering/Resolving]
  - Aggression [Unknown]
